FAERS Safety Report 18437434 (Version 2)
Quarter: 2020Q4

REPORT INFORMATION
  Report Type: Spontaneous
  Country: US (occurrence: US)
  Receive Date: 20201028
  Receipt Date: 20201030
  Transmission Date: 20210114
  Serious: Yes (Life-Threatening, Hospitalization, Other)
  Sender: FDA-Public Use
  Company Number: US-PFIZER INC-2020415736

PATIENT
  Age: 26 Year
  Sex: Female

DRUGS (1)
  1. AMLODIPINE BESILATE [Suspect]
     Active Substance: AMLODIPINE BESYLATE
     Dosage: 60 DF, SINGLE

REACTIONS (4)
  - Hypotension [Recovered/Resolved]
  - Tachycardia [Recovering/Resolving]
  - Intentional overdose [Unknown]
  - Distributive shock [Recovered/Resolved]
